FAERS Safety Report 9415208 (Version 2)
Quarter: 2013Q3

REPORT INFORMATION
  Report Type: Spontaneous
  Country: US (occurrence: US)
  Receive Date: 20130723
  Receipt Date: 20130903
  Transmission Date: 20140515
  Serious: Yes (Hospitalization)
  Sender: FDA-Public Use
  Company Number: US-B.I. PHARMACEUTICALS,INC./RIDGEFIELD-2013-BI-20423BP

PATIENT
  Sex: Male
  Weight: 107 kg

DRUGS (2)
  1. COMBIVENT [Suspect]
     Indication: ASTHMA
     Dosage: STRENGTH: 18 MCG / 103 MCG; DAILY DOSE: 216 MCG/1236 MCG
     Route: 055
     Dates: start: 1996, end: 20130614
  2. HIZENTRA [Concomitant]
     Indication: HYPOGAMMAGLOBULINAEMIA
     Route: 058
     Dates: start: 2011

REACTIONS (4)
  - Pneumonia [Recovered/Resolved]
  - Pneumonia [Recovered/Resolved]
  - Off label use [Recovered/Resolved]
  - Product quality issue [Unknown]
